FAERS Safety Report 6244354 (Version 3)
Quarter: 2018Q2

REPORT INFORMATION
  Report Type: Spontaneous
  Country: TR (occurrence: TR)
  Receive Date: 20070223
  Receipt Date: 20180416
  Transmission Date: 20180711
  Serious: Yes (Hospitalization, Other)
  Sender: FDA-Public Use
  Company Number: TR-PFIZER INC-2007011217

PATIENT
  Age: 36 Year
  Sex: Male

DRUGS (2)
  1. VIAGRA [Suspect]
     Active Substance: SILDENAFIL CITRATE
     Dosage: 100 MG, UNK
     Route: 048
  2. VIAGRA [Suspect]
     Active Substance: SILDENAFIL CITRATE
     Dosage: 100 MG, UNK
     Route: 048

REACTIONS (11)
  - Retinal haemorrhage [Unknown]
  - Papilloedema [Unknown]
  - Retinal artery occlusion [Unknown]
  - Retinal vein occlusion [Unknown]
  - Chromatopsia [Unknown]
  - Optic disc haemorrhage [Unknown]
  - Blood pressure decreased [Unknown]
  - Retinal vascular disorder [Unknown]
  - Optic ischaemic neuropathy [Unknown]
  - Visual impairment [Unknown]
  - Visual field defect [Unknown]
